FAERS Safety Report 6097511-2 (Version None)
Quarter: 2009Q1

REPORT INFORMATION
  Report Type: 
  Country: None (occurrence: None)
  Receive Date: 20090227
  Receipt Date: 20081023
  Transmission Date: 20090719
  Serious: No
  Sender: FDA-Public Use
  Company Number: A0745669A

PATIENT
  Age: 53 Year
  Sex: Female

DRUGS (7)
  1. IMITREX [Suspect]
     Indication: MIGRAINE
     Dosage: 6MG AS REQUIRED
     Route: 058
  2. AMBIEN [Concomitant]
  3. CLONAZEPAM [Concomitant]
  4. PROPRANOLOL HYDROCHLORIDE SUSTAINED RELEASE [Concomitant]
  5. SERTRALINE [Concomitant]
  6. PREMPRO [Concomitant]
  7. BUSPIRONE HCL [Concomitant]

REACTIONS (4)
  - BURNING SENSATION [None]
  - DRUG INEFFECTIVE [None]
  - FLUSHING [None]
  - PRODUCT QUALITY ISSUE [None]
